FAERS Safety Report 6874978-0 (Version None)
Quarter: 2010Q3

REPORT INFORMATION
  Report Type: 
  Country: None (occurrence: None)
  Receive Date: 20100723
  Receipt Date: 20100709
  Transmission Date: 20110219
  Serious: Yes (Hospitalization)
  Sender: FDA-Public Use
  Company Number: 1000014788

PATIENT
  Age: 18 Year
  Sex: Female
  Weight: 50 kg

DRUGS (7)
  1. ESCITALOPRAM [Suspect]
     Indication: DEPRESSION
     Dosage: ORAL; 20 MG (20 MG, 1 IN 1 D), ORAL
     Route: 048
     Dates: start: 20100602, end: 20100602
  2. ESCITALOPRAM [Suspect]
     Indication: DEPRESSION
     Dosage: ORAL; 20 MG (20 MG, 1 IN 1 D), ORAL
     Route: 048
     Dates: start: 20100510
  3. ALPRAZOLAM [Suspect]
     Dosage: ORAL, 0.5 DOSAGE FORMS (0.5 DOSAGE FORMS, 1 IN 1 D), ORAL
     Route: 048
     Dates: start: 20100602, end: 20100602
  4. ALPRAZOLAM [Suspect]
     Dosage: ORAL, 0.5 DOSAGE FORMS (0.5 DOSAGE FORMS, 1 IN 1 D), ORAL
     Route: 048
     Dates: start: 20100510
  5. ZOLPIDEM [Suspect]
     Dosage: ORAL, 5 MG (5 MG, 1 IN 1 D), ORAL
     Route: 048
     Dates: start: 20100602, end: 20100602
  6. ZOLPIDEM [Suspect]
     Dosage: ORAL, 5 MG (5 MG, 1 IN 1 D), ORAL
     Route: 048
     Dates: start: 20100510
  7. VODKA [Suspect]
     Dosage: 1/2 BOTTLE, ORAL
     Route: 048
     Dates: start: 20100602, end: 20100602

REACTIONS (2)
  - MULTIPLE DRUG OVERDOSE INTENTIONAL [None]
  - SUICIDE ATTEMPT [None]
